FAERS Safety Report 4801935-8 (Version None)
Quarter: 2005Q4

REPORT INFORMATION
  Report Type: 
  Country: None (occurrence: None)
  Receive Date: 20051014
  Receipt Date: 20051014
  Transmission Date: 20060501
  Serious: Yes (Death)
  Sender: FDA-Public Use
  Company Number: None

PATIENT
  Sex: Female
  Weight: 58.9676 kg

DRUGS (4)
  1. CYMBALTA [Suspect]
     Indication: BIPOLAR DISORDER
     Dosage: 20 MG PO QAM (047)
     Route: 048
     Dates: start: 20050915, end: 20050924
  2. CYMBALTA [Suspect]
     Indication: MAJOR DEPRESSION
     Dosage: 20 MG PO QAM (047)
     Route: 048
     Dates: start: 20050915, end: 20050924
  3. SEROQUEL [Concomitant]
  4. XANAX [Concomitant]

REACTIONS (4)
  - COMPLETED SUICIDE [None]
  - INJURY ASPHYXIATION [None]
  - TREATMENT NONCOMPLIANCE [None]
  - WEIGHT INCREASED [None]
